FAERS Safety Report 7623314-0 (Version None)
Quarter: 2011Q3

REPORT INFORMATION
  Report Type: 
  Country: None (occurrence: None)
  Receive Date: 20110720
  Receipt Date: 20110711
  Transmission Date: 20111222
  Serious: Yes (Life-Threatening, Other)
  Sender: FDA-Public Use
  Company Number: US-ROCHE-776272

PATIENT
  Sex: Female

DRUGS (4)
  1. IRINOTECAN HCL [Concomitant]
  2. AVASTIN [Suspect]
     Dosage: LAST TREATMENT WITH BEVACIZUMAB: 17 DEC 2010.
     Route: 065
  3. LEUCOVORIN CALCIUM [Concomitant]
  4. OXALIPLATIN [Concomitant]

REACTIONS (2)
  - TOXICITY TO VARIOUS AGENTS [None]
  - PULMONARY HYPERTENSION [None]
